FAERS Safety Report 6803631-4 (Version None)
Quarter: 2010Q2

REPORT INFORMATION
  Report Type: 
  Country: None (occurrence: None)
  Receive Date: 20100628
  Receipt Date: 20100621
  Transmission Date: 20101027
  Serious: Yes (Hospitalization)
  Sender: FDA-Public Use
  Company Number: US-GENENTECH-301606

PATIENT
  Sex: Female
  Weight: 73.2 kg

DRUGS (21)
  1. XOLAIR [Suspect]
     Indication: ASTHMA
     Dosage: 300 MG, Q2W
     Route: 058
     Dates: start: 20090526
  2. SYMBICORT [Concomitant]
     Indication: DRUG USE FOR UNKNOWN INDICATION
  3. ALBUTEROL [Concomitant]
     Indication: DRUG USE FOR UNKNOWN INDICATION
  4. ALLEGRA [Concomitant]
     Indication: DRUG USE FOR UNKNOWN INDICATION
  5. LEVOXYL [Concomitant]
     Indication: DRUG USE FOR UNKNOWN INDICATION
  6. WELLBUTRIN [Concomitant]
     Indication: DRUG USE FOR UNKNOWN INDICATION
  7. AMBIEN [Concomitant]
     Indication: DRUG USE FOR UNKNOWN INDICATION
  8. XANAX [Concomitant]
     Indication: DRUG USE FOR UNKNOWN INDICATION
  9. CYMBALTA [Concomitant]
     Indication: DRUG USE FOR UNKNOWN INDICATION
  10. ZANTAC [Concomitant]
     Indication: DRUG USE FOR UNKNOWN INDICATION
  11. BENADRYL [Concomitant]
     Indication: HYPERSENSITIVITY
  12. BENADRYL [Concomitant]
     Indication: URTICARIA
  13. LEVOTHYROXINE SODIUM [Concomitant]
     Indication: DRUG USE FOR UNKNOWN INDICATION
  14. LOTREL [Concomitant]
     Indication: DRUG USE FOR UNKNOWN INDICATION
  15. PEPCID [Concomitant]
     Indication: DRUG USE FOR UNKNOWN INDICATION
  16. TYLENOL #3 (UNITED STATES) [Concomitant]
     Indication: DRUG USE FOR UNKNOWN INDICATION
  17. PHENERGAN [Concomitant]
     Indication: DRUG USE FOR UNKNOWN INDICATION
  18. PREDNISONE [Concomitant]
     Indication: DRUG USE FOR UNKNOWN INDICATION
  19. IMMUNE GLOBULIN NOS [Concomitant]
     Indication: URTICARIA
  20. STEROIDS (UNK INGREDIENTS) [Concomitant]
     Indication: DRUG USE FOR UNKNOWN INDICATION
  21. BIRTH CONTROL (UNK INGREDIENTS) [Concomitant]
     Indication: CONTRACEPTION

REACTIONS (4)
  - ANGIOEDEMA [None]
  - ASTHMA [None]
  - CHEST DISCOMFORT [None]
  - URTICARIA [None]
